FAERS Safety Report 4707135-4 (Version None)
Quarter: 2005Q3

REPORT INFORMATION
  Report Type: 
  Country: None (occurrence: None)
  Receive Date: 20050706
  Receipt Date: 20050531
  Transmission Date: 20060218
  Serious: Yes (Death, Hospitalization)
  Sender: FDA-Public Use
  Company Number: ES-ROCHE-406450

PATIENT
  Age: 53 Year
  Sex: Female

DRUGS (24)
  1. CAPECITABINE [Suspect]
     Indication: BREAST CANCER
     Dosage: FOR TWO IN EVERY THREE WEEKS.
     Route: 048
     Dates: start: 20050509
  2. MORPHINE [Suspect]
     Indication: PAIN
     Route: 048
     Dates: start: 20050421, end: 20050523
  3. ENOXAPARIN SODIUM [Concomitant]
     Route: 058
     Dates: start: 20050517, end: 20050523
  4. MORPHINE CHLORIDE [Concomitant]
     Indication: PAIN
     Route: 058
     Dates: start: 20050523, end: 20050603
  5. LIDOCAINE [Concomitant]
     Route: 048
     Dates: start: 20050523, end: 20050602
  6. DIFLUCAN [Concomitant]
     Indication: INFECTION
     Route: 042
     Dates: start: 20050523, end: 20050527
  7. OMEPRAZOLE [Concomitant]
     Indication: PROPHYLAXIS
     Route: 042
     Dates: start: 20050523, end: 20050602
  8. ZOFRAN [Concomitant]
     Indication: ANTIEMETIC SUPPORTIVE CARE
     Route: 042
     Dates: start: 20050523, end: 20050530
  9. 1 CONCOMITANT DRUG [Concomitant]
     Dosage: REPORTED AS MUCOSTATINE.
     Route: 048
     Dates: start: 20050523, end: 20050602
  10. FORTAM [Concomitant]
     Route: 042
     Dates: start: 20050523, end: 20050602
  11. AMIKACIN SULFATE [Concomitant]
     Route: 042
     Dates: start: 20050523, end: 20050601
  12. NEUPOGEN [Concomitant]
     Route: 058
     Dates: start: 20050523, end: 20050602
  13. BUSCAPINA [Concomitant]
     Route: 042
     Dates: start: 20050525, end: 20050603
  14. SEGURIL [Concomitant]
     Route: 042
     Dates: start: 20050526, end: 20050602
  15. ATROVENT [Concomitant]
     Dates: start: 20050602, end: 20050602
  16. VENTOLIN [Concomitant]
     Dates: start: 20050602, end: 20050602
  17. AMINOSTERIL [Concomitant]
     Route: 042
     Dates: start: 20050602, end: 20050602
  18. URBASON [Concomitant]
     Route: 042
     Dates: start: 20050602, end: 20050603
  19. LOITIN [Concomitant]
     Route: 042
     Dates: start: 20050528, end: 20050602
  20. VANCOMYCIN [Concomitant]
     Route: 042
     Dates: start: 20050528, end: 20050602
  21. ACETAMINOPHEN [Concomitant]
     Route: 042
     Dates: start: 20050603, end: 20050603
  22. DORMICUM [Concomitant]
     Route: 042
     Dates: start: 20050602, end: 20050603
  23. ACTRAPID [Concomitant]
     Route: 058
     Dates: start: 20050523, end: 20050602
  24. EUFILINA [Concomitant]
     Route: 042
     Dates: start: 20050602, end: 20050603

REACTIONS (5)
  - ANAEMIA [None]
  - DISEASE PROGRESSION [None]
  - FEBRILE NEUTROPENIA [None]
  - MUCOSAL INFLAMMATION [None]
  - THROMBOCYTOPENIA [None]
